FAERS Safety Report 13319120 (Version 1)
Quarter: 2017Q1

REPORT INFORMATION
  Report Type: Spontaneous
  Country: US (occurrence: None)
  Receive Date: 20170309
  Receipt Date: 20170309
  Transmission Date: 20170428
  Serious: No
  Sender: FDA-Public Use
  Company Number: US-009507513-1703USA002570

PATIENT
  Sex: Female

DRUGS (1)
  1. BCG VACCINE USP [Suspect]
     Active Substance: BCG VACCINE
     Indication: TUBERCULOSIS BLADDER

REACTIONS (1)
  - Allergy to vaccine [None]
